FAERS Safety Report 4293946-9 (Version None)
Quarter: 2004Q1

REPORT INFORMATION
  Report Type: 
  Country: None (occurrence: None)
  Receive Date: 20040212
  Receipt Date: 20040212
  Transmission Date: 20041129
  Serious: Yes (Other)
  Sender: FDA-Public Use
  Company Number: None

PATIENT
  Age: 42 Year
  Sex: Female
  Weight: 57.6068 kg

DRUGS (1)
  1. ZICAM NASAL GEL 12074 PL EXP12/05 [Suspect]
     Dosage: 1 DOSE NASAL
     Route: 045

REACTIONS (1)
  - PAIN [None]
